FAERS Safety Report 6096052-6 (Version None)
Quarter: 2009Q1

REPORT INFORMATION
  Report Type: 
  Country: None (occurrence: None)
  Receive Date: 20090227
  Receipt Date: 20080829
  Transmission Date: 20090719
  Serious: No
  Sender: FDA-Public Use
  Company Number: A0743543A

PATIENT
  Age: 22 Year
  Sex: Female

DRUGS (2)
  1. LAMICTAL [Suspect]
     Dates: start: 20080812, end: 20080819
  2. BUPROPION HCL [Concomitant]
     Dosage: 300MG UNKNOWN
     Route: 048

REACTIONS (2)
  - RASH MACULAR [None]
  - URTICARIA [None]
